FAERS Safety Report 4288777-X (Version None)
Quarter: 2004Q1

REPORT INFORMATION
  Report Type: 
  Country: None (occurrence: None)
  Receive Date: 20040205
  Receipt Date: 20040127
  Transmission Date: 20041129
  Serious: Yes (Life-Threatening, Hospitalization)
  Sender: FDA-Public Use
  Company Number: 200408930

PATIENT
  Age: 74 Year
  Sex: Male

DRUGS (13)
  1. STREPTOKINASE (STREPTOKINASE) [Suspect]
     Indication: MYOCARDIAL INFARCTION
     Dosage: IV
     Route: 042
     Dates: start: 20040115, end: 20040115
  2. ASPIRIN [Suspect]
     Indication: MYOCARDIAL INFARCTION
     Dosage: 150 MG DAILY PO
     Route: 048
     Dates: start: 20040116, end: 20040120
  3. ENOXAPARIN OR PLACEBO VS. HEPARIN OR PLACEBO [Suspect]
     Indication: MYOCARDIAL INFARCTION
     Dosage: IV
     Route: 042
     Dates: start: 20040115, end: 20040119
  4. CLOPIDOGREL BISULFATE [Concomitant]
  5. CARDIZEM [Concomitant]
  6. LIPITOR [Concomitant]
  7. MORPHINE [Concomitant]
  8. FRUSEMIDE [Concomitant]
  9. SLOW-K [Concomitant]
  10. METOPROLOL TARTRATE [Concomitant]
  11. CEFTRIAXONE [Concomitant]
  12. RULIDE [Concomitant]
  13. ACETAMINOPHEN [Concomitant]

REACTIONS (10)
  - BRAIN COMPRESSION [None]
  - BRAIN OEDEMA [None]
  - CEREBRAL HAEMATOMA [None]
  - CONFUSIONAL STATE [None]
  - DISTURBANCE IN ATTENTION [None]
  - INTRAVENTRICULAR HAEMORRHAGE [None]
  - MENTAL IMPAIRMENT [None]
  - PNEUMONIA [None]
  - PYREXIA [None]
  - SUBARACHNOID HAEMORRHAGE [None]
